FAERS Safety Report 25766510 (Version 1)
Quarter: 2025Q3

REPORT INFORMATION
  Report Type: Spontaneous
  Country: US (occurrence: None)
  Receive Date: 20250903
  Receipt Date: 20250903
  Transmission Date: 20251020
  Serious: Yes (Hospitalization)
  Sender: FDA-CTU
  Company Number: None

PATIENT
  Age: 31 Year
  Sex: Female
  Weight: 58.1 kg

DRUGS (17)
  1. AJOVY [Suspect]
     Active Substance: FREMANEZUMAB-VFRM
     Indication: Migraine
     Route: 058
  2. GABAPENTIN [Concomitant]
     Active Substance: GABAPENTIN
  3. SEMAGLUTIDE [Concomitant]
     Active Substance: SEMAGLUTIDE
  4. MAGNESIUM 125MG CAPSULES [Concomitant]
  5. VITAMIN B-12 1000MCG CR TABLETS [Concomitant]
  6. VITAMIN D 1,000IU H/PTNCY CAPSULES [Concomitant]
  7. ALLERGY REL (CETIRIZINE)120MG 12H T [Concomitant]
  8. AMITRIPTYLINE [Concomitant]
     Active Substance: AMITRIPTYLINE
  9. BISOPROLOL FUMARATE 10MG TABLETS [Concomitant]
  10. DOXYCYCLINE HYCLATE [Concomitant]
     Active Substance: DOXYCYCLINE HYCLATE
  11. IRON FOLATE -F CAPSULES [Concomitant]
  12. LEVOTHYROXINE 0.025MG (25MCG) TAB [Concomitant]
  13. SERTRALINE [Concomitant]
     Active Substance: SERTRALINE HYDROCHLORIDE
  14. THYROID (ARMOUR) 2GR (120MG) TABS [Concomitant]
  15. CYCLOBENZAPRINE HYDROCHLORIDE [Concomitant]
     Active Substance: CYCLOBENZAPRINE HYDROCHLORIDE
  16. IBUPROFEN 200MG TABLETS [Concomitant]
  17. MAGNESIUM 250MG TABLETS [Concomitant]

REACTIONS (2)
  - Migraine [None]
  - Insomnia [None]

NARRATIVE: CASE EVENT DATE: 20250902
